FAERS Safety Report 18398592 (Version 1)
Quarter: 2020Q4

REPORT INFORMATION
  Report Type: Spontaneous
  Country: US (occurrence: US)
  Receive Date: 20201019
  Receipt Date: 20201019
  Transmission Date: 20210114
  Serious: No
  Sender: FDA-Public Use
  Company Number: US-VERTEX PHARMACEUTICALS-2020-020313

PATIENT
  Age: 3 Year
  Sex: Female
  Weight: 14.01 kg

DRUGS (7)
  1. VITAMIN D [COLECALCIFEROL] [Concomitant]
     Active Substance: CHOLECALCIFEROL
     Dosage: TABLET
  2. ORKAMBI [Suspect]
     Active Substance: IVACAFTOR\LUMACAFTOR
     Indication: CYSTIC FIBROSIS
     Dosage: 1 DOSAGE FORM, BID
     Route: 048
  3. PULMOZYME [Concomitant]
     Active Substance: DORNASE ALFA
     Dosage: SOLUTION
  4. IRON [FERROUS CITRATE] [Concomitant]
     Active Substance: FERROUS CITRATE
     Dosage: 18 MG TABLET
  5. SODIUM CHLORIDE. [Concomitant]
     Active Substance: SODIUM CHLORIDE
     Dosage: VIAL-NEB
  6. ZENPEP [Concomitant]
     Active Substance: PANCRELIPASE AMYLASE\PANCRELIPASE LIPASE\PANCRELIPASE PROTEASE
     Dosage: 5K-17K-24K CAPSULE DR
  7. PEDIASURE PEPTIDE 1.0 CAL [Concomitant]

REACTIONS (1)
  - Rectal prolapse [Unknown]

NARRATIVE: CASE EVENT DATE: 20201003
